FAERS Safety Report 6201130-4 (Version None)
Quarter: 2009Q2

REPORT INFORMATION
  Report Type: 
  Country: None (occurrence: None)
  Receive Date: 20090519
  Receipt Date: 20090427
  Transmission Date: 20091009
  Serious: Yes (Death)
  Sender: FDA-Public Use
  Company Number: 2009S1007338

PATIENT
  Age: 3 Decade
  Sex: Male

DRUGS (3)
  1. PROPRANOLOL [Suspect]
     Dosage: 1 MG; INTRAVENOUS
     Route: 042
  2. CARIMAZOLE [Concomitant]
  3. HYDROCORTISONE [Concomitant]

REACTIONS (4)
  - BLOOD PRESSURE DECREASED [None]
  - CARDIOMYOPATHY [None]
  - ELECTROMECHANICAL DISSOCIATION [None]
  - TREATMENT NONCOMPLIANCE [None]
